FAERS Safety Report 6894586-5 (Version None)
Quarter: 2010Q3

REPORT INFORMATION
  Report Type: 
  Country: None (occurrence: None)
  Receive Date: 20100802
  Receipt Date: 20100721
  Transmission Date: 20110219
  Serious: Yes (Other)
  Sender: FDA-Public Use
  Company Number: PHHY2010GB47718

PATIENT
  Age: 28 Year
  Sex: Female

DRUGS (2)
  1. CYCLOSPORINE [Suspect]
     Indication: ECZEMA
  2. PREDNISOLONE [Suspect]
     Route: 048

REACTIONS (12)
  - BACK PAIN [None]
  - INTERVERTEBRAL DISC SPACE NARROWING [None]
  - INTERVERTEBRAL DISCITIS [None]
  - MALAISE [None]
  - OEDEMA [None]
  - OSTEOMYELITIS [None]
  - PYREXIA [None]
  - RENAL FAILURE ACUTE [None]
  - SPINAL CORD INFECTION [None]
  - STAPHYLOCOCCAL INFECTION [None]
  - TACHYCARDIA [None]
  - URINARY RETENTION [None]
